FAERS Safety Report 5622837-3 (Version None)
Quarter: 2008Q1

REPORT INFORMATION
  Report Type: 
  Country: None (occurrence: None)
  Receive Date: 20080212
  Receipt Date: 20080205
  Transmission Date: 20080703
  Serious: Yes (Death)
  Sender: FDA-Public Use
  Company Number: US-ELI_LILLY_AND_COMPANY-US200802001211

PATIENT
  Age: 51 Year
  Sex: Female

DRUGS (1)
  1. ZYPREXA ZYDIS [Suspect]
     Indication: INSOMNIA
     Dosage: 15 MG, UNK
     Dates: start: 20080129

REACTIONS (2)
  - DEATH [None]
  - HYPERSOMNIA [None]
